FAERS Safety Report 17265317 (Version 4)
Quarter: 2021Q1

REPORT INFORMATION
  Report Type: Other
  Country: GB (occurrence: GB)
  Receive Date: 20200114
  Receipt Date: 20210302
  Transmission Date: 20210419
  Serious: Yes (Hospitalization)
  Sender: FDA-Public Use
  Company Number: GB-ROCHE-1882052

PATIENT
  Age: 70 Year
  Sex: Female

DRUGS (16)
  1. DIHYDROCODEINE [Concomitant]
     Active Substance: DIHYDROCODEINE
     Indication: PAIN
     Route: 048
     Dates: start: 20161116
  2. PARACETAMOL [Concomitant]
     Active Substance: ACETAMINOPHEN
     Indication: ABDOMINAL PAIN LOWER
     Route: 048
  3. PERTUZUMAB. [Suspect]
     Active Substance: PERTUZUMAB
     Dosage: NUMBER OF CYCLES PER REGIMEN: 6
     Route: 042
     Dates: start: 20160803
  4. DOCETAXEL. [Suspect]
     Active Substance: DOCETAXEL
     Indication: BREAST CANCER METASTATIC
     Route: 042
     Dates: start: 20160728, end: 20160803
  5. CO?AMOXICLAV [Concomitant]
     Active Substance: AMOXICILLIN\CLAVULANATE POTASSIUM
     Dosage: OTHER: OVER THE COURSE OF 4 DAYS
     Route: 048
     Dates: start: 20160815, end: 20160819
  6. TRASTUZUMAB. [Suspect]
     Active Substance: TRASTUZUMAB
     Indication: BREAST CANCER METASTATIC
     Dosage: NUMBER OF CYCLES PER REGIMEN: 6
     Route: 041
     Dates: start: 20160628, end: 20160628
  7. SALBUTAMOL [Concomitant]
     Active Substance: ALBUTEROL
     Dosage: 1 PUFF
     Route: 048
  8. RANITIDINE. [Concomitant]
     Active Substance: RANITIDINE
     Route: 048
     Dates: start: 20160811
  9. TRASTUZUMAB. [Suspect]
     Active Substance: TRASTUZUMAB
     Dosage: NUMBER OF CYCLES PER REGIMEN: 6
     Route: 042
     Dates: start: 20160803, end: 20160824
  10. CYCLIZINE [Concomitant]
     Active Substance: CYCLIZINE
     Indication: NAUSEA
     Route: 048
  11. LAXIDO [Concomitant]
     Active Substance: POLYETHYLENE GLYCOL 3350\POTASSIUM CHLORIDE\SODIUM BICARBONATE\SODIUM CHLORIDE
     Indication: DIARRHOEA
     Dosage: 1 OTHER SACHET
     Route: 048
     Dates: start: 20161121, end: 20161122
  12. CALCICHEW D3 FORTE [Concomitant]
     Active Substance: CALCIUM\CHOLECALCIFEROL
     Indication: CALCIUM DEFICIENCY
     Dosage: 1 TABLET EVERY NIGHT (ON)
     Route: 048
  13. CALCICHEW D3 FORTE [Concomitant]
     Active Substance: CALCIUM\CHOLECALCIFEROL
     Indication: VITAMIN D DEFICIENCY
  14. PERTUZUMAB. [Suspect]
     Active Substance: PERTUZUMAB
     Indication: BREAST CANCER METASTATIC
     Dosage: NUMBER OF CYCLES PER REGIMEN: 6
     Route: 042
     Dates: start: 20160728, end: 20160728
  15. TRASTUZUMAB. [Suspect]
     Active Substance: TRASTUZUMAB
     Dosage: NUMBER OF CYCLES PER REGIMEN: 6
     Route: 042
     Dates: start: 20160921
  16. TAZOCIN [Concomitant]
     Active Substance: PIPERACILLIN SODIUM\TAZOBACTAM SODIUM
     Route: 042
     Dates: start: 20160811, end: 20160813

REACTIONS (5)
  - Overflow diarrhoea [Recovered/Resolved]
  - Abdominal pain lower [Unknown]
  - Constipation [Recovered/Resolved]
  - Abdominal pain [Unknown]
  - Biliary sepsis [Recovered/Resolved with Sequelae]

NARRATIVE: CASE EVENT DATE: 20160907
